FAERS Safety Report 17849621 (Version 1)
Quarter: 2020Q2

REPORT INFORMATION
  Report Type: Report from Study
  Country: None (occurrence: NL)
  Receive Date: 20200602
  Receipt Date: 20200602
  Transmission Date: 20200714
  Serious: Yes (Hospitalization, Other)
  Sender: FDA-Public Use
  Company Number: NL-BIOVITRUM-2020SE20962

PATIENT
  Age: 6 Month
  Sex: Male

DRUGS (3)
  1. FERROFUMARAAT [Concomitant]
     Indication: PRODUCT USED FOR UNKNOWN INDICATION
  2. SYNAGIS [Suspect]
     Active Substance: PALIVIZUMAB
     Route: 030
     Dates: start: 20200116
  3. SYNAGIS [Suspect]
     Active Substance: PALIVIZUMAB
     Indication: ANTIVIRAL PROPHYLAXIS
     Dosage: 54 MG/KG/MONTH (25-OCT-2019), 64 MG/KG/MONTH (22-NOV-2019), 71 MG/KG/MONTH (20-DEC-2019)
     Route: 030
     Dates: start: 20191025, end: 20200116

REACTIONS (3)
  - Cerebral haemorrhage [Recovered/Resolved]
  - Body temperature increased [Recovered/Resolved]
  - Brain oedema [Recovered/Resolved]

NARRATIVE: CASE EVENT DATE: 20200309
